FAERS Safety Report 13267106 (Version 1)
Quarter: 2017Q1

REPORT INFORMATION
  Report Type: Spontaneous
  Country: US (occurrence: US)
  Receive Date: 20170223
  Receipt Date: 20170223
  Transmission Date: 20170428
  Serious: Yes (Life-Threatening, Hospitalization, Disabling)
  Sender: FDA-Public Use
  Company Number: None

PATIENT
  Age: 90 Year
  Sex: Female
  Weight: 77.3 kg

DRUGS (19)
  1. TROPOL XL [Concomitant]
  2. VITAMIN D3 [Concomitant]
     Active Substance: CHOLECALCIFEROL
  3. ACETAMINOPHEN. [Suspect]
     Active Substance: ACETAMINOPHEN
  4. ELIQUIS [Suspect]
     Active Substance: APIXABAN
     Indication: ATRIAL FIBRILLATION
     Route: 048
     Dates: start: 20160917, end: 20170220
  5. ALMACONE [Concomitant]
     Active Substance: ALUMINUM HYDROXIDE\DIMETHICONE\MAGNESIUM HYDROXIDE
  6. MAGNESIUM HYDROXIDE. [Concomitant]
     Active Substance: MAGNESIUM HYDROXIDE
  7. SIMVASTATIN. [Concomitant]
     Active Substance: SIMVASTATIN
  8. LUTEIN [Concomitant]
     Active Substance: LUTEIN
  9. BISACODYL. [Concomitant]
     Active Substance: BISACODYL
  10. AMIODARONE [Concomitant]
     Active Substance: AMIODARONE
  11. TRAMADOL. [Concomitant]
     Active Substance: TRAMADOL
  12. FUROSEMIDE. [Concomitant]
     Active Substance: FUROSEMIDE
  13. DOCUSATE SODIUM. [Concomitant]
     Active Substance: DOCUSATE SODIUM
  14. LOPERAMIDE [Concomitant]
     Active Substance: LOPERAMIDE
  15. ACETAMINOPHEN. [Concomitant]
     Active Substance: ACETAMINOPHEN
  16. GUAIFENESIN ER [Concomitant]
     Active Substance: GUAIFENESIN
  17. RANITIDINE. [Concomitant]
     Active Substance: RANITIDINE
  18. LOSARTAN. [Concomitant]
     Active Substance: LOSARTAN
  19. XALATAN [Concomitant]
     Active Substance: LATANOPROST

REACTIONS (3)
  - Hypertension [None]
  - Brain herniation [None]
  - Cerebral haemorrhage [None]

NARRATIVE: CASE EVENT DATE: 20170220
